FAERS Safety Report 13387608 (Version 1)
Quarter: 2017Q1

REPORT INFORMATION
  Report Type: Spontaneous
  Country: US (occurrence: US)
  Receive Date: 20170330
  Receipt Date: 20170330
  Transmission Date: 20170429
  Serious: No
  Sender: FDA-Public Use
  Company Number: US-MYLANLABS-2017M1005191

PATIENT
  Age: 75 Year
  Sex: Female
  Weight: 47.62 kg

DRUGS (2)
  1. ESTRADIOL TRANSDERMAL SYSTEM [Suspect]
     Active Substance: ESTRADIOL
     Indication: PRODUCT USED FOR UNKNOWN INDICATION
     Dosage: 0.025 MG, QD, CHANGED QWEEK
     Route: 062
  2. ESTRADIOL TRANSDERMAL SYSTEM [Suspect]
     Active Substance: ESTRADIOL
     Dosage: 0.025 MG, QD (THREE-QUARTERS), CHANGED Q2WEEKS
     Route: 062

REACTIONS (5)
  - Visual impairment [Unknown]
  - Headache [Unknown]
  - Feeling abnormal [Unknown]
  - Inappropriate schedule of drug administration [Unknown]
  - Wrong technique in product usage process [Unknown]
